FAERS Safety Report 6957989-6 (Version None)
Quarter: 2010Q3

REPORT INFORMATION
  Report Type: 
  Country: None (occurrence: None)
  Receive Date: 20100830
  Receipt Date: 20100830
  Transmission Date: 20110219
  Serious: Yes (Other)
  Sender: FDA-Public Use
  Company Number: None

PATIENT
  Sex: Female
  Weight: 63.5036 kg

DRUGS (2)
  1. LAMOTRIGINE [Suspect]
     Dosage: 2 TABS QD PO
     Route: 048
     Dates: start: 20100727, end: 20100813
  2. LAMOTRIGINE [Suspect]
     Dosage: 2 TABS QD PO
     Route: 048
     Dates: start: 20100813, end: 20100821

REACTIONS (4)
  - DISTURBANCE IN ATTENTION [None]
  - DIZZINESS [None]
  - DRUG INEFFECTIVE [None]
  - PRODUCT SUBSTITUTION ISSUE [None]
